FAERS Safety Report 15979920 (Version 2)
Quarter: 2019Q1

REPORT INFORMATION
  Report Type: Spontaneous
  Country: FR (occurrence: FR)
  Receive Date: 20190219
  Receipt Date: 20190330
  Transmission Date: 20190418
  Serious: Yes (Other)
  Sender: FDA-Public Use
  Company Number: FR-ACCORD-107860

PATIENT
  Age: 69 Year
  Sex: Male
  Weight: 89 kg

DRUGS (3)
  1. FLUOROURACIL ACCORD [Suspect]
     Active Substance: FLUOROURACIL
     Indication: COLON CANCER METASTATIC
     Dosage: UNSPECIFIED
     Route: 042
     Dates: start: 201712
  2. OXALIPLATIN HOSPIRA [Suspect]
     Active Substance: OXALIPLATIN
     Indication: COLON CANCER METASTATIC
     Route: 042
     Dates: start: 201712
  3. AVASTIN [Suspect]
     Active Substance: BEVACIZUMAB
     Indication: COLON CANCER METASTATIC
     Dosage: UNSPECIFIED
     Route: 042
     Dates: start: 201712

REACTIONS (1)
  - Skin necrosis [Recovering/Resolving]

NARRATIVE: CASE EVENT DATE: 201806
